FAERS Safety Report 18075794 (Version 1)
Quarter: 2020Q3

REPORT INFORMATION
  Report Type: Spontaneous
  Country: US (occurrence: US)
  Receive Date: 20200727
  Receipt Date: 20200727
  Transmission Date: 20201103
  Serious: No
  Sender: FDA-Public Use
  Company Number: US-ABBVIE-20K-163-3310175-00

PATIENT
  Sex: Female

DRUGS (1)
  1. LEVOTHYROXINE. [Suspect]
     Active Substance: LEVOTHYROXINE
     Indication: THYROIDECTOMY
     Dosage: UNKNOWN
     Route: 065
     Dates: start: 2015, end: 2018

REACTIONS (2)
  - Therapeutic product effect incomplete [Recovered/Resolved]
  - Fatigue [Recovering/Resolving]
